FAERS Safety Report 6188512-4 (Version None)
Quarter: 2009Q2

REPORT INFORMATION
  Report Type: 
  Country: None (occurrence: None)
  Receive Date: 20090513
  Receipt Date: 20071009
  Transmission Date: 20091009
  Serious: Yes (Hospitalization, Other)
  Sender: FDA-Public Use
  Company Number: ES-ALEXION-A200700072

PATIENT

DRUGS (2)
  1. SOLIRIS [Suspect]
     Indication: PAROXYSMAL NOCTURNAL HAEMOGLOBINURIA
     Dosage: 600 MG, PER WEEK
     Route: 042
     Dates: start: 20070831, end: 20070921
  2. SOLIRIS [Suspect]
     Route: 042
     Dates: start: 20071005, end: 20071005

REACTIONS (1)
  - PNEUMONIA [None]
